FAERS Safety Report 12100895 (Version 1)
Quarter: 2016Q1

REPORT INFORMATION
  Report Type: Spontaneous
  Country: CH (occurrence: CH)
  Receive Date: 20160222
  Receipt Date: 20160222
  Transmission Date: 20160526
  Serious: Yes (Hospitalization)
  Sender: FDA-Public Use
  Company Number: CH-TEVA-637145ISR

PATIENT
  Age: 45 Year
  Sex: Male

DRUGS (2)
  1. CLARITHROMYCIN. [Suspect]
     Active Substance: CLARITHROMYCIN
     Indication: GASTROENTERITIS BACTERIAL
     Route: 042
  2. CEFTRIAXONE. [Concomitant]
     Active Substance: CEFTRIAXONE
     Indication: GASTROENTERITIS BACTERIAL
     Route: 042

REACTIONS (18)
  - Paraparesis [Recovered/Resolved]
  - Pancytopenia [Recovered/Resolved]
  - Delirium [Recovered/Resolved]
  - Alopecia [Recovered/Resolved]
  - Bone marrow failure [Recovered/Resolved]
  - Hypertension [Recovered/Resolved]
  - Acute prerenal failure [Recovered/Resolved]
  - Myalgia [Recovered/Resolved]
  - Paresis [Recovered/Resolved]
  - Confusional state [Recovered/Resolved]
  - Weight decreased [Recovered/Resolved]
  - Drug interaction [Recovered/Resolved]
  - Coma [Recovered/Resolved]
  - Enterocolitis [Recovered/Resolved]
  - Rhabdomyolysis [Recovered/Resolved]
  - Blood disorder [Recovered/Resolved]
  - Accidental poisoning [Recovered/Resolved]
  - Leukocytosis [Recovered/Resolved]
